FAERS Safety Report 5002722-0 (Version None)
Quarter: 2006Q2

REPORT INFORMATION
  Report Type: 
  Country: None (occurrence: None)
  Receive Date: 20060516
  Receipt Date: 20060508
  Transmission Date: 20061013
  Serious: Yes (Other)
  Sender: FDA-Public Use
  Company Number: PHBS2006BR07024

PATIENT
  Age: 58 Year
  Sex: Female
  Weight: 65 kg

DRUGS (10)
  1. FORASEQ [Suspect]
     Indication: ASTHMA
  2. OMEPRAZOLE [Concomitant]
     Indication: GASTRITIS
     Dosage: 1 TABLET/DAY
     Route: 048
  3. BRICANYL [Concomitant]
     Indication: ASTHMA
  4. SINGULAIR [Concomitant]
     Indication: ASTHMA
     Dosage: 10 MG/DAY
     Route: 048
  5. ACTIVELLE [Concomitant]
     Indication: HORMONE REPLACEMENT THERAPY
     Dosage: 1 TABLET/ DAY
     Route: 048
  6. GLIBENCLAMIDE [Concomitant]
     Indication: DIABETES MELLITUS NON-INSULIN-DEPENDENT
     Dosage: 1/2 TABLET,BID
  7. OLCADIL [Concomitant]
     Dosage: 1 TABLET/DAY
     Route: 048
  8. METFORMIN [Concomitant]
     Indication: DIABETES MELLITUS
  9. DIOVAN HCT [Suspect]
     Indication: HYPERTENSION
     Dosage: VALS 160 / HCT 12.5 MG/DAY
     Route: 048
     Dates: start: 20021201
  10. DIOVAN HCT [Suspect]
     Dosage: VALS 160 / HCT 25 MG/DAY
     Route: 048

REACTIONS (6)
  - ARRHYTHMIA [None]
  - DIARRHOEA [None]
  - DRUG INTERACTION [None]
  - FEELING ABNORMAL [None]
  - HEART RATE INCREASED [None]
  - TACHYCARDIA [None]
